FAERS Safety Report 6074215-3 (Version None)
Quarter: 2009Q1

REPORT INFORMATION
  Report Type: 
  Country: None (occurrence: None)
  Receive Date: 20090211
  Receipt Date: 20090130
  Transmission Date: 20090719
  Serious: Yes (Hospitalization)
  Sender: FDA-Public Use
  Company Number: JP-SANOFI-SYNTHELABO-A01200901262

PATIENT
  Age: 71 Year
  Sex: Male

DRUGS (4)
  1. LEVOFOLINATE FOR IV INFUSION [Concomitant]
     Indication: RECTAL CANCER
     Dosage: UNK
     Route: 041
     Dates: start: 20090120, end: 20090120
  2. AVASTIN [Suspect]
     Dosage: UNK
     Route: 041
     Dates: start: 20090120, end: 20090120
  3. FLUOROURACIL [Suspect]
     Dosage: UNK
     Route: 042
     Dates: start: 20090120, end: 20090120
  4. ELPLAT [Suspect]
     Indication: RECTAL CANCER
     Dosage: UNK
     Route: 041
     Dates: start: 20090120, end: 20090120

REACTIONS (1)
  - PNEUMOTHORAX [None]
